FAERS Safety Report 7572036-3 (Version None)
Quarter: 2011Q2

REPORT INFORMATION
  Report Type: 
  Country: None (occurrence: None)
  Receive Date: 20110624
  Receipt Date: 20110614
  Transmission Date: 20111010
  Serious: Yes (Death)
  Sender: FDA-Public Use
  Company Number: HU-UCBSA-035299

PATIENT
  Sex: Female

DRUGS (1)
  1. CIMZIA [Suspect]
     Dosage: RECOMMENDED DOSE
     Route: 058

REACTIONS (3)
  - SEPSIS [None]
  - TUBERCULOSIS [None]
  - DEATH [None]
